FAERS Safety Report 5920992-9 (Version None)
Quarter: 2008Q4

REPORT INFORMATION
  Report Type: 
  Country: None (occurrence: None)
  Receive Date: 20081016
  Receipt Date: 20081007
  Transmission Date: 20090506
  Serious: Yes (Other)
  Sender: FDA-Public Use
  Company Number: US-AVENTIS-200814140US

PATIENT
  Sex: Female

DRUGS (1)
  1. KETEK [Suspect]
     Indication: EAR INFECTION
     Dosage: DOSE: UNK
     Dates: start: 20060801, end: 20060901

REACTIONS (2)
  - HEPATIC FAILURE [None]
  - HEPATITIS [None]
